FAERS Safety Report 7644835-0 (Version None)
Quarter: 2011Q3

REPORT INFORMATION
  Report Type: 
  Country: None (occurrence: None)
  Receive Date: 20110729
  Receipt Date: 20110722
  Transmission Date: 20111222
  Serious: Yes (Other)
  Sender: FDA-Public Use
  Company Number: US-PFIZER INC-2010084321

PATIENT
  Sex: Female
  Weight: 77.098 kg

DRUGS (4)
  1. XALATAN [Suspect]
     Indication: GLAUCOMA
     Dosage: UNK
     Route: 047
     Dates: end: 20110701
  2. TRAVATAN [Suspect]
     Indication: GLAUCOMA
     Dosage: 1 GTT, 1X/DAY
     Route: 047
  3. AZOPT [Suspect]
     Indication: GLAUCOMA
     Dosage: 1 GTT, 1X/DAY
     Route: 047
  4. LATANOPROST [Suspect]
     Indication: GLAUCOMA
     Dosage: 1 GTT, 1X/DAY
     Route: 047
     Dates: start: 20110501, end: 20110601

REACTIONS (13)
  - NIGHT BLINDNESS [None]
  - SPONDYLITIS [None]
  - VERTIGO [None]
  - DIZZINESS [None]
  - INTRAOCULAR PRESSURE INCREASED [None]
  - PALPITATIONS [None]
  - HEART RATE IRREGULAR [None]
  - DRUG HYPERSENSITIVITY [None]
  - VISUAL IMPAIRMENT [None]
  - VISION BLURRED [None]
  - HEART RATE INCREASED [None]
  - CATARACT [None]
  - DRUG INEFFECTIVE [None]
